FAERS Safety Report 7229056 (Version 3)
Quarter: 2012Q4

REPORT INFORMATION
  Report Type: 
  Country: US (occurrence: None)
  Receive Date: 20091207
  Receipt Date: 20120912
  Transmission Date: 20130627
  Serious: Yes (Hospitalization, Other)
  Sender: FDA-Public Use
  Company Number: 2009AP004731

PATIENT
  Age: 70 Year
  Sex: Male

DRUGS (4)
  1. AMIODARONE HYDROCHLORIDE [Suspect]
     Indication: PROPHYLAXIS
     Dosage: 800 MG;QD;PO; 400 MG;QD;PO
     Route: 048
  2. AMIODARONE HYDROCHLORIDE [Suspect]
     Indication: PROPHYLAXIS
     Dosage: 800 MG;QD;PO; 400 MG;QD;PO
     Route: 048
  3. LISINOPRIL [Concomitant]
  4. METOPROLOL TARTRATE [Concomitant]

REACTIONS (2)
  - LEUKOCYTOCLASTIC VASCULITIS [None]
  - ARTHRALGIA [None]
